FAERS Safety Report 9523122 (Version 1)
Quarter: 2013Q1

REPORT INFORMATION
  Report Type: Spontaneous
  Country: US (occurrence: None)
  Receive Date: 20130305
  Receipt Date: 20130305
  Transmission Date: 20140127
  Serious: Yes (Disabling, Other)
  Sender: FDA-Public Use
  Company Number: 163-21880-12031944

PATIENT
  Age: 59 Year
  Sex: Female
  Weight: 61.4 kg

DRUGS (3)
  1. REVLIMID [Suspect]
     Indication: PLASMA CELL MYELOMA
     Dosage: DAYS 1-21 OF 28
     Route: 048
     Dates: start: 20101130
  2. DEXAMETHASONE (DEXAMETHASONE) [Concomitant]
  3. ZOLEDRONIC ACID (ZOLEDRONIC ACID) [Concomitant]

REACTIONS (3)
  - Platelet count decreased [None]
  - Monoclonal immunoglobulin present [None]
  - Drug ineffective [None]
